FAERS Safety Report 4906076-7 (Version None)
Quarter: 2006Q1

REPORT INFORMATION
  Report Type: 
  Country: None (occurrence: None)
  Receive Date: 20060209
  Receipt Date: 20060131
  Transmission Date: 20060701
  Serious: Yes (Hospitalization)
  Sender: FDA-Public Use
  Company Number: DK-JNJFOC-20060200951

PATIENT
  Age: 60 Year
  Sex: Female

DRUGS (1)
  1. REMICADE [Suspect]
     Dosage: 4 INFUSIONS. 0, 2, 6.
     Route: 042

REACTIONS (1)
  - TOXIC EPIDERMAL NECROLYSIS [None]
